FAERS Safety Report 6654553-3 (Version None)
Quarter: 2010Q1

REPORT INFORMATION
  Report Type: 
  Country: None (occurrence: None)
  Receive Date: 20100326
  Receipt Date: 20100316
  Transmission Date: 20100710
  Serious: Yes (Other)
  Sender: FDA-Public Use
  Company Number: BR-PFIZER INC-2010033752

PATIENT
  Age: 30 Year
  Sex: Male

DRUGS (3)
  1. CHAMPIX [Suspect]
     Indication: NICOTINE DEPENDENCE
     Dosage: 0.5 MG, 1X/DAY
     Route: 048
     Dates: start: 20100208, end: 20100210
  2. CHAMPIX [Suspect]
     Indication: ATAXIA
     Dosage: 0.5 MG, 2X/DAY
     Route: 048
     Dates: start: 20100211, end: 20100214
  3. CHAMPIX [Suspect]
     Dosage: 1 MG, 2X/DAY
     Route: 048
     Dates: start: 20100215, end: 20100222

REACTIONS (2)
  - ATAXIA [None]
  - DEPRESSION [None]
